FAERS Safety Report 5935350-0 (Version None)
Quarter: 2008Q4

REPORT INFORMATION
  Report Type: 
  Country: None (occurrence: None)
  Receive Date: 20081030
  Receipt Date: 20081024
  Transmission Date: 20090506
  Serious: Yes (Hospitalization)
  Sender: FDA-Public Use
  Company Number: US-BRISTOL-MYERS SQUIBB COMPANY-14383202

PATIENT
  Age: 15 Year
  Sex: Female
  Weight: 39 kg

DRUGS (21)
  1. SUSTIVA LIQUID [Suspect]
     Dosage: FORM LIQUID.DISCONTINUED FROM STUDY ON 08OCT08.
     Dates: start: 20080716, end: 20080821
  2. POLY-VI-FLOR [Concomitant]
     Dates: start: 20010515
  3. ZIAGEN [Concomitant]
     Dates: start: 20030618, end: 20080801
  4. KALETRA [Concomitant]
     Dates: start: 20030618, end: 20080801
  5. PREVACID [Concomitant]
  6. METAMUCIL [Concomitant]
  7. TYLENOL [Concomitant]
  8. VANCOMYCIN HYDROCHLORIDE [Concomitant]
  9. OSMOLITE [Concomitant]
  10. VORICONAZOLE [Concomitant]
  11. MORPHINE [Concomitant]
  12. MATRINE INJECTION [Concomitant]
  13. NEXIUM [Concomitant]
  14. FLAGYL [Concomitant]
  15. PEPCID [Concomitant]
  16. MYLANTA [Concomitant]
  17. G-MYCIN [Concomitant]
  18. ZITHROMAX [Concomitant]
  19. DESITIN [Concomitant]
  20. SODIUM CHLORIDE [Concomitant]
  21. MEROPENEM [Concomitant]

REACTIONS (2)
  - ILEUS [None]
  - PNEUMONIA [None]
